FAERS Safety Report 17298357 (Version 4)
Quarter: 2020Q4

REPORT INFORMATION
  Report Type: Spontaneous
  Country: JP (occurrence: JP)
  Receive Date: 20200122
  Receipt Date: 20201020
  Transmission Date: 20210113
  Serious: Yes (Hospitalization)
  Sender: FDA-Public Use
  Company Number: NVSJ2020JP000592

PATIENT
  Age: 18 Year
  Sex: Female

DRUGS (2)
  1. SORAFENIB [Concomitant]
     Active Substance: SORAFENIB
     Indication: METASTASES TO LUNG
     Dosage: UNK
     Route: 065
  2. EVEROLIMUS. [Suspect]
     Active Substance: EVEROLIMUS
     Indication: OSTEOSARCOMA
     Dosage: UNK
     Route: 048

REACTIONS (4)
  - Bronchial fistula [Recovering/Resolving]
  - Cough [Recovering/Resolving]
  - Lymphadenopathy [Unknown]
  - Product use in unapproved indication [Unknown]
